FAERS Safety Report 7722456-9 (Version None)
Quarter: 2011Q3

REPORT INFORMATION
  Report Type: 
  Country: None (occurrence: None)
  Receive Date: 20110831
  Receipt Date: 20110822
  Transmission Date: 20111222
  Serious: Yes (Hospitalization)
  Sender: FDA-Public Use
  Company Number: FR-NOVOPROD-334165

PATIENT

DRUGS (7)
  1. ADANCOR [Concomitant]
     Dosage: 2 DF, QD
     Route: 048
  2. ASPIRIN [Concomitant]
     Dosage: 160 MG, QD
     Route: 048
  3. VICTOZA [Suspect]
     Indication: TYPE 2 DIABETES MELLITUS
     Dosage: 0.6 MG, QD
     Route: 058
     Dates: start: 20110430, end: 20110510
  4. BISOPROLOL FUMARATE [Concomitant]
     Dosage: 5 MG, QD
     Route: 048
  5. GLUCOPHAGE [Concomitant]
     Dosage: 3 DOSES DAILY
     Route: 048
  6. RAMIPRIL [Concomitant]
     Dosage: 10 MG, QD
     Route: 048
  7. DIAMICRON [Concomitant]
     Dosage: 4 DOSES DAILY
     Route: 048

REACTIONS (2)
  - COLITIS ISCHAEMIC [None]
  - LIPASE INCREASED [None]
